FAERS Safety Report 17481649 (Version 1)
Quarter: 2020Q1

REPORT INFORMATION
  Report Type: Spontaneous
  Country: NL (occurrence: NL)
  Receive Date: 20200302
  Receipt Date: 20200302
  Transmission Date: 20200409
  Serious: Yes (Hospitalization)
  Sender: FDA-Public Use
  Company Number: NL-TEVA-2020-NL-1192351

PATIENT
  Sex: Female
  Weight: 93 kg

DRUGS (2)
  1. AMOXICILLINE [Suspect]
     Active Substance: AMOXICILLIN
     Indication: RESPIRATORY TRACT INFECTION
     Dosage: CAPSULE, 500 MG (MILLIGRAM), 3 TIMES A DAY, 1
     Route: 065
     Dates: start: 20200127
  2. IBUPROFEN. [Concomitant]
     Active Substance: IBUPROFEN
     Dosage: CAPSULE, 200 MG (MILLIGRAM)

REACTIONS (4)
  - Pyrexia [Unknown]
  - Pruritus [Unknown]
  - Rash maculo-papular [Unknown]
  - Hyponatraemia [Unknown]
